FAERS Safety Report 4902801-X (Version None)
Quarter: 2006Q1

REPORT INFORMATION
  Report Type: 
  Country: None (occurrence: None)
  Receive Date: 20060207
  Receipt Date: 20060203
  Transmission Date: 20060701
  Serious: Yes (Death)
  Sender: FDA-Public Use
  Company Number: NO-GLAXOSMITHKLINE-B0409218A

PATIENT
  Age: 80 Year
  Sex: Female

DRUGS (2)
  1. ZINACEF [Suspect]
     Indication: LOWER RESPIRATORY TRACT INFECTION
     Dosage: 3MG UNKNOWN
     Route: 042
     Dates: start: 20051107, end: 20051110
  2. OVESTERIN [Concomitant]
     Dosage: 3MG UNKNOWN
     Route: 065

REACTIONS (1)
  - CLOSTRIDIUM COLITIS [None]
